FAERS Safety Report 21208387 (Version 1)
Quarter: 2022Q3

REPORT INFORMATION
  Report Type: Report from Study
  Country: US (occurrence: US)
  Receive Date: 20220812
  Receipt Date: 20220812
  Transmission Date: 20221026
  Serious: Yes (Hospitalization, Other)
  Sender: FDA-Public Use
  Company Number: US-HLS-202201315

PATIENT
  Age: 64 Year
  Sex: Female

DRUGS (1)
  1. CLOZAPINE [Suspect]
     Active Substance: CLOZAPINE
     Indication: Product used for unknown indication
     Route: 065

REACTIONS (6)
  - Neutrophil count decreased [Recovered/Resolved]
  - Neutrophilia [Unknown]
  - Neutrophilia [Unknown]
  - Neoplasm malignant [Unknown]
  - Neutrophil count increased [Unknown]
  - Adverse event [Unknown]

NARRATIVE: CASE EVENT DATE: 20220513
